FAERS Safety Report 7844757 (Version 2)
Quarter: 2014Q2

REPORT INFORMATION
  Report Type: Other
  Country: DE (occurrence: DE)
  Receive Date: 20110307
  Receipt Date: 20140404
  Transmission Date: 20141212
  Serious: Yes (Other)
  Sender: FDA-Public Use
  Company Number: DE-BRISTOL-MYERS SQUIBB COMPANY-15583289

PATIENT
  Age: 30 Year
  Sex: Male

DRUGS (2)
  1. ABILIFY [Suspect]
     Dosage: 4SEP10(WITH RESERVATION).
     Route: 048
     Dates: start: 20100831
  2. TAVOR [Suspect]
     Dosage: 1MG:30AUG10-2SEP10?0.5MG:3SEP10-5SEP10
     Route: 048
     Dates: start: 20100830, end: 20100905

REACTIONS (1)
  - Hiccups [Recovered/Resolved]
